FAERS Safety Report 5678371-8 (Version None)
Quarter: 2008Q1

REPORT INFORMATION
  Report Type: 
  Country: None (occurrence: None)
  Receive Date: 20080321
  Receipt Date: 20080306
  Transmission Date: 20080703
  Serious: Yes (Death, Hospitalization)
  Sender: FDA-Public Use
  Company Number: 2008000070

PATIENT
  Age: 68 Year
  Sex: Male

DRUGS (2)
  1. TARCEVA [Suspect]
     Indication: NON-SMALL CELL LUNG CANCER
     Dosage: (150 MG, QD ), 0RAL
     Route: 048
     Dates: start: 20071201, end: 20071205
  2. COUMADIN [Concomitant]

REACTIONS (11)
  - ANAEMIA [None]
  - BACTERAEMIA [None]
  - INTERNATIONAL NORMALISED RATIO INCREASED [None]
  - MYOCARDIAL INFARCTION [None]
  - PLEURAL EFFUSION [None]
  - PNEUMONIA BACTERIAL [None]
  - PNEUMONIA STAPHYLOCOCCAL [None]
  - POLYNEUROPATHY [None]
  - PULMONARY ALVEOLAR HAEMORRHAGE [None]
  - RESPIRATORY FAILURE [None]
  - THROMBOCYTOPENIA [None]
